FAERS Safety Report 7427654-X (Version None)
Quarter: 2011Q2

REPORT INFORMATION
  Report Type: 
  Country: None (occurrence: None)
  Receive Date: 20110408
  Receipt Date: 20110328
  Transmission Date: 20111010
  Serious: Yes (Death, Other)
  Sender: FDA-Public Use
  Company Number: 2007-02429

PATIENT
  Age: 73 Year
  Sex: Male
  Weight: 53 kg

DRUGS (15)
  1. ASPARA K (ASPARTATE POTASSIUM) [Concomitant]
  2. BAKTAR (SULFAMETHOXAZOLE, TRIMETHOPRIM) TABLET [Suspect]
     Indication: PROPHYLAXIS
     Dosage: 1.00 DF,ORAL
     Route: 048
  3. RABEPRAZOLE SODIUM [Concomitant]
  4. AMARYL [Concomitant]
  5. BASEN (VOGLIBOSE) [Concomitant]
  6. VELCADE [Suspect]
     Indication: MULTIPLE MYELOMA
     Dosage: 1.60 MG, INTRAVENOUS
     Route: 042
     Dates: start: 20070501, end: 20070611
  7. ITRIZOLE (ITRACONAZOLE) [Suspect]
     Indication: PNEUMONIA BACTERIAL
     Dosage: 200.00 MG, ORAL
     Route: 048
     Dates: start: 20070529, end: 20070624
  8. TAMSULOSIN HYDROCHLORIDE [Concomitant]
  9. FLOMOX (CEFCAPENE PIVOXIL HYDROCHLORIDE) [Concomitant]
  10. POTASSIUM GLUCONATE TAB [Concomitant]
  11. MEIACT (CEFDITOREN PIVOXIL) [Suspect]
     Indication: PROPHYLAXIS
     Dosage: 300.00 MG, ORAL
     Route: 048
     Dates: start: 20070621, end: 20070625
  12. AMLODIPINE BESYLATE [Concomitant]
  13. ZOMETA [Concomitant]
  14. ROCEPHIN [Concomitant]
  15. DEXAMETHASONE [Suspect]
     Indication: MULTIPLE MYELOMA
     Dosage: 40.00 MG, INTRAVENOUS
     Route: 042
     Dates: start: 20070501, end: 20070612

REACTIONS (5)
  - INAPPROPRIATE ANTIDIURETIC HORMONE SECRETION [None]
  - PNEUMONIA BACTERIAL [None]
  - INTERSTITIAL LUNG DISEASE [None]
  - DISEASE PROGRESSION [None]
  - DIZZINESS [None]
